FAERS Safety Report 9148463 (Version 4)
Quarter: 2013Q2

REPORT INFORMATION
  Report Type: Report from Study
  Country: US (occurrence: US)
  Receive Date: 20130308
  Receipt Date: 20130523
  Transmission Date: 20140414
  Serious: Yes (Death, Hospitalization)
  Sender: FDA-Public Use
  Company Number: PHEH2013US005439

PATIENT
  Sex: Female
  Weight: 93.7 kg

DRUGS (2)
  1. GLEEVEC [Suspect]
     Indication: CHRONIC MYELOID LEUKAEMIA
     Dosage: 100 MG, BID
     Route: 048
     Dates: start: 200106
  2. GLEEVEC [Suspect]
     Dosage: 200 MG, DAILY
     Route: 048
     Dates: start: 20130121

REACTIONS (4)
  - Chronic obstructive pulmonary disease [Fatal]
  - Gastrointestinal haemorrhage [Fatal]
  - Bronchitis [Unknown]
  - Cardiac failure congestive [Unknown]
